FAERS Safety Report 10058554 (Version 3)
Quarter: 2014Q2

REPORT INFORMATION
  Report Type: Report from Study
  Country: JP (occurrence: JP)
  Receive Date: 20140404
  Receipt Date: 20140414
  Transmission Date: 20141212
  Serious: Yes (Other)
  Sender: FDA-Public Use
  Company Number: JP-ASTELLAS-2014JP002218

PATIENT
  Age: 58 Year
  Sex: Female
  Weight: 55 kg

DRUGS (16)
  1. MIRABEGRON [Suspect]
     Indication: HYPERTONIC BLADDER
     Route: 048
     Dates: start: 20131210
  2. SOLANAX [Concomitant]
     Indication: SCHIZOPHRENIA
     Dosage: UNK UNK, TOTAL DOSE
     Route: 048
  3. LENDORMIN [Concomitant]
     Indication: INSOMNIA
     Dosage: 0.25 MG, ONCE DAILY
     Route: 048
  4. WINTERMIN                          /00011908/ [Concomitant]
     Indication: SCHIZOPHRENIA
     Dosage: UNK UNK, UNKNOWN FREQ.
     Route: 048
  5. DEPAS [Concomitant]
     Indication: SCHIZOPHRENIA
     Dosage: UNK UNK, UNKNOWN FREQ.
     Route: 048
  6. MAGMITT [Concomitant]
     Indication: CONSTIPATION
     Dosage: UNK UNK, UNKNOWN FREQ.
     Route: 048
  7. TAKEPRON [Concomitant]
     Indication: PROPHYLAXIS
     Dosage: UNK UNK, UNKNOWN FREQ.
     Route: 048
  8. TSUMURA TOKISHIGYAKUKAGOSHUYUSHOKYOTO EXTRACT GRANULES FOR ETHICAL USE [Concomitant]
     Indication: LUMBAR SPINAL STENOSIS
     Dosage: UNK UNK, UNKNOWN FREQ.
     Route: 048
  9. OPALMON [Concomitant]
     Indication: LUMBAR SPINAL STENOSIS
     Dosage: UNK UNK, UNKNOWN FREQ.
     Route: 048
     Dates: end: 20140105
  10. OPALMON [Concomitant]
     Dosage: UNK UNK, UNKNOWN FREQ.
     Route: 048
     Dates: start: 20140106, end: 20140204
  11. METHYCOBAL [Concomitant]
     Indication: NEUROPATHY PERIPHERAL
     Dosage: UNK UNK, UNKNOWN FREQ.
     Route: 048
     Dates: end: 20140105
  12. METHYCOBAL [Concomitant]
     Dosage: UNK UNK, UNKNOWN FREQ.
     Route: 048
     Dates: start: 20140106, end: 20140204
  13. SELTOUCH [Concomitant]
     Indication: LUMBAR SPINAL STENOSIS
     Dosage: UNK UNK, UNKNOWN FREQ.
     Route: 061
  14. TRANCOLON [Concomitant]
     Indication: IRRITABLE BOWEL SYNDROME
     Dosage: UNK UNK, UNKNOWN FREQ.
     Route: 048
     Dates: start: 20140108
  15. POLYFUL [Concomitant]
     Indication: IRRITABLE BOWEL SYNDROME
     Dosage: UNK UNK, UNKNOWN FREQ.
     Route: 048
     Dates: start: 20140108
  16. AMITIZA [Concomitant]
     Indication: IRRITABLE BOWEL SYNDROME
     Dosage: UNK UNK, UNKNOWN FREQ.
     Route: 048
     Dates: start: 20140108

REACTIONS (3)
  - Colitis ischaemic [Recovering/Resolving]
  - Pharyngitis [Recovered/Resolved]
  - Bronchitis [Recovered/Resolved]
